FAERS Safety Report 9005169 (Version 1)
Quarter: 2013Q1

REPORT INFORMATION
  Report Type: Spontaneous
  Country: US (occurrence: US)
  Receive Date: 20130109
  Receipt Date: 20130109
  Transmission Date: 20140127
  Serious: Yes (Hospitalization)
  Sender: FDA-Public Use
  Company Number: US-VIROPHARMA INCORPORATED-20121218CINRY3755

PATIENT
  Age: 38 None
  Sex: Male
  Weight: 95.34 kg

DRUGS (8)
  1. CINRYZE (C1 ESTERASE INHIBITOR (HUMAN)) [Suspect]
     Indication: HEREDITARY ANGIOEDEMA
     Dates: start: 201212
  2. ATENOLOL [Concomitant]
     Indication: HYPERTENSION
     Dosage: UNKNOWN
     Route: 065
  3. KLONOPIN [Concomitant]
     Indication: PRODUCT USED FOR UNKNOWN INDICATION
     Dosage: UNKNOWN
     Route: 065
  4. VYVANSE [Concomitant]
     Indication: PRODUCT USED FOR UNKNOWN INDICATION
     Dosage: UNKNOWN
     Route: 065
  5. EFFEXOR XR [Concomitant]
     Indication: PRODUCT USED FOR UNKNOWN INDICATION
     Dosage: UNKNOWN
     Route: 065
  6. HYDROCODONE [Concomitant]
     Indication: PRODUCT USED FOR UNKNOWN INDICATION
     Dosage: UNKNOWN
     Route: 065
  7. ZOFRAN [Concomitant]
     Indication: PRODUCT USED FOR UNKNOWN INDICATION
     Dosage: UNKNOWN
     Route: 065
  8. PHENERGAN [Concomitant]
     Indication: PRODUCT USED FOR UNKNOWN INDICATION
     Dosage: UNKNOWN
     Route: 065

REACTIONS (8)
  - Infection [Recovering/Resolving]
  - Hereditary angioedema [Recovering/Resolving]
  - Vomiting [Recovering/Resolving]
  - Aspiration [Recovering/Resolving]
  - Oxygen saturation decreased [Recovering/Resolving]
  - Oropharyngeal pain [Recovering/Resolving]
  - Dysphagia [Recovering/Resolving]
  - Therapy change [Not Recovered/Not Resolved]
